FAERS Safety Report 8683630 (Version 2)
Quarter: 2012Q4

REPORT INFORMATION
  Report Type: 
  Country: None (occurrence: None)
  Receive Date: 20120726
  Receipt Date: 20121023
  Transmission Date: 20130627
  Serious: Yes (Hospitalization)
  Sender: FDA-Public Use
  Company Number: RS-PFIZER INC-2012176117

PATIENT
  Age: 54 Year
  Sex: Male

DRUGS (4)
  1. PREGABALIN [Suspect]
     Indication: GENERALISED ANXIETY DISORDER
     Dosage: 450 mg daily
  2. PREGABALIN [Suspect]
     Indication: STRESS AT WORK
     Dosage: 4.2 g, UNK
  3. BROMAZEPAM [Suspect]
     Indication: STRESS AT WORK
     Dosage: 21 mg, UNK
  4. CLOMIPRAMINE [Suspect]
     Indication: STRESS AT WORK
     Dosage: 125 mg, UNK

REACTIONS (1)
  - Poisoning deliberate [Recovered/Resolved]
